FAERS Safety Report 12555211 (Version 1)
Quarter: 2016Q3

REPORT INFORMATION
  Report Type: Spontaneous
  Country: US (occurrence: US)
  Receive Date: 20160714
  Receipt Date: 20160714
  Transmission Date: 20161109
  Serious: Yes (Other)
  Sender: FDA-Public Use
  Company Number: US-ROCHE-1791846

PATIENT
  Sex: Female

DRUGS (1)
  1. TAMIFLU [Suspect]
     Active Substance: OSELTAMIVIR PHOSPHATE
     Indication: INFLUENZA
     Dosage: TOOK 3 DOSES
     Route: 065
     Dates: start: 20160330

REACTIONS (16)
  - Restlessness [Unknown]
  - Nasopharyngitis [Unknown]
  - Gastroenteritis viral [Unknown]
  - Insomnia [Unknown]
  - Nausea [Unknown]
  - Malaise [Unknown]
  - Mental disorder [Unknown]
  - Dysphagia [Unknown]
  - Cough [Unknown]
  - Influenza [Unknown]
  - Vomiting [Unknown]
  - Headache [Unknown]
  - Oropharyngeal pain [Unknown]
  - Palpitations [Unknown]
  - Pain [Unknown]
  - Nasal congestion [Unknown]
